FAERS Safety Report 6297276-5 (Version None)
Quarter: 2009Q3

REPORT INFORMATION
  Report Type: 
  Country: None (occurrence: None)
  Receive Date: 20090804
  Receipt Date: 20090804
  Transmission Date: 20100115
  Serious: Yes (Disabling)
  Sender: FDA-Public Use
  Company Number: None

PATIENT
  Age: 36 Year
  Sex: Male
  Weight: 81.6475 kg

DRUGS (2)
  1. ZICAM COLD REMEDY NASAL SPRAY [Suspect]
     Indication: HYPERSENSITIVITY
     Dosage: ZICAM NASAL SPRAY AS DIRECTED NOSE, 2X/YEAR
     Route: 045
     Dates: start: 20040105, end: 20080101
  2. ZICAM COLD REMEDY ^RAPID MELTS^ AND ^COLD + FLU NIGHTTIME^ [Suspect]
     Indication: HYPERSENSITIVITY
     Dosage: AS DIRECTED MOUTH, 2X YEAR - 2008
     Route: 048
     Dates: start: 20040105, end: 20080101

REACTIONS (4)
  - ANOSMIA [None]
  - COUGH [None]
  - HYPOSMIA [None]
  - SNEEZING [None]
